FAERS Safety Report 9596141 (Version 1)
Quarter: 2013Q4

REPORT INFORMATION
  Report Type: Spontaneous
  Country: DE (occurrence: DE)
  Receive Date: 20131004
  Receipt Date: 20131004
  Transmission Date: 20140711
  Serious: Yes (Other)
  Sender: FDA-Public Use
  Company Number: DE-TEVA-434911GER

PATIENT
  Sex: Female

DRUGS (1)
  1. BISOPROLOL ABZ [Suspect]
     Route: 048

REACTIONS (2)
  - Melaena [Not Recovered/Not Resolved]
  - Gout [Not Recovered/Not Resolved]
